FAERS Safety Report 12634739 (Version 2)
Quarter: 2016Q4

REPORT INFORMATION
  Report Type: Spontaneous
  Country: US (occurrence: US)
  Receive Date: 20160808
  Receipt Date: 20161005
  Transmission Date: 20170207
  Serious: Yes (Death, Hospitalization)
  Sender: FDA-Public Use
  Company Number: US-PFIZER INC-2016374022

PATIENT
  Age: 69 Year
  Sex: Female
  Weight: 93 kg

DRUGS (7)
  1. MAGNESIUM OXIDE. [Concomitant]
     Active Substance: MAGNESIUM OXIDE
     Dosage: 400 MG, 1X/DAY
     Route: 048
     Dates: end: 20160901
  2. AFINITOR [Concomitant]
     Active Substance: EVEROLIMUS
     Indication: NEOPLASM MALIGNANT
     Dosage: 10 MG, DAILY
     Route: 048
     Dates: end: 20160901
  3. CENTRUM SILVER ADULTS 50+ [Concomitant]
     Active Substance: MINERALS\VITAMINS
     Indication: PROPHYLAXIS
     Dosage: 1 DF, DAILY
     Route: 048
     Dates: end: 20160901
  4. AFINITOR [Concomitant]
     Active Substance: EVEROLIMUS
     Dosage: 5 MG, UNK
  5. AROMASIN [Suspect]
     Active Substance: EXEMESTANE
     Indication: NEOPLASM MALIGNANT
  6. AROMASIN [Suspect]
     Active Substance: EXEMESTANE
     Indication: OVARIAN CANCER
     Dosage: 25 MG, 1X/DAY, AFTER A MEAL
     Route: 048
     Dates: end: 20160901
  7. NORVASC [Concomitant]
     Active Substance: AMLODIPINE BESYLATE
     Dosage: 5 MG, DAILY
     Route: 048
     Dates: end: 20160901

REACTIONS (9)
  - Drug ineffective for unapproved indication [Unknown]
  - Dyspnoea [Recovering/Resolving]
  - Cough [Unknown]
  - Neoplasm progression [Fatal]
  - Fall [Unknown]
  - Abdominal pain upper [Unknown]
  - Dysgeusia [Unknown]
  - Diarrhoea [Unknown]
  - Feeling abnormal [Unknown]

NARRATIVE: CASE EVENT DATE: 2016
